FAERS Safety Report 6430851-3 (Version None)
Quarter: 2009Q4

REPORT INFORMATION
  Report Type: 
  Country: None (occurrence: None)
  Receive Date: 20091106
  Receipt Date: 20091023
  Transmission Date: 20100525
  Serious: Yes (Other)
  Sender: FDA-Public Use
  Company Number: FR-MERCK-0910FRA00084

PATIENT
  Age: 16 Year
  Sex: Male

DRUGS (30)
  1. CANCIDAS [Suspect]
     Indication: PYREXIA
     Route: 042
     Dates: start: 20090726, end: 20090809
  2. CYTARABINE [Suspect]
     Indication: ACUTE MYELOID LEUKAEMIA
     Route: 051
     Dates: start: 20090726, end: 20090726
  3. CYTARABINE [Suspect]
     Route: 051
     Dates: start: 20090803, end: 20090803
  4. CYTARABINE [Suspect]
     Route: 041
     Dates: start: 20090726, end: 20090801
  5. METHOTREXATE [Suspect]
     Indication: ACUTE MYELOID LEUKAEMIA
     Route: 051
     Dates: start: 20090726, end: 20090726
  6. METHOTREXATE [Suspect]
     Route: 051
     Dates: start: 20090803, end: 20090803
  7. MITOXANTRONE HYDROCHLORIDE [Suspect]
     Indication: ACUTE MYELOID LEUKAEMIA
     Route: 042
     Dates: start: 20090726, end: 20090730
  8. METHYLPREDNISOLONE [Suspect]
     Indication: ACUTE MYELOID LEUKAEMIA
     Route: 051
     Dates: start: 20090726, end: 20090726
  9. METHYLPREDNISOLONE [Suspect]
     Route: 051
     Dates: start: 20090803, end: 20090803
  10. PIPERACILLIN SODIUM AND TAZOBACTAM SODIUM [Suspect]
     Indication: PYREXIA
     Route: 042
     Dates: start: 20090725, end: 20090806
  11. TEICOPLANIN [Suspect]
     Indication: PYREXIA
     Route: 042
     Dates: start: 20090725
  12. GENTAMICIN SULFATE [Suspect]
     Indication: PYREXIA
     Route: 042
     Dates: start: 20090728
  13. AMPHOTERICIN B [Suspect]
     Indication: PYREXIA
     Route: 048
     Dates: start: 20090728
  14. CIPROFLOXACIN [Suspect]
     Indication: PYREXIA
     Route: 042
     Dates: start: 20090802
  15. ESOMEPRAZOLE MAGNESIUM [Suspect]
     Route: 042
     Dates: start: 20090728
  16. RACECADOTRIL [Suspect]
     Route: 048
     Dates: start: 20090731
  17. METRONIDAZOLE [Suspect]
     Route: 042
     Dates: start: 20090803, end: 20090806
  18. SULFAMETHOXAZOLE AND TRIMETHOPRIM [Suspect]
     Indication: ANTIFUNGAL PROPHYLAXIS
     Route: 048
     Dates: start: 20090804
  19. ACYCLOVIR [Suspect]
     Indication: PYREXIA
     Route: 042
     Dates: start: 20090805
  20. CILASTATIN SODIUM AND IMIPENEM [Suspect]
     Indication: PYREXIA
     Route: 042
     Dates: start: 20090807, end: 20090816
  21. TRAMADOL HYDROCHLORIDE [Suspect]
     Indication: PAIN
     Route: 042
     Dates: start: 20090807, end: 20090809
  22. ONDANSETRON [Concomitant]
     Indication: NAUSEA
     Route: 042
  23. ALIZAPRIDE HYDROCHLORIDE [Concomitant]
     Indication: NAUSEA
     Route: 042
  24. AMIKACIN SULFATE [Concomitant]
     Indication: PYREXIA
     Route: 042
     Dates: start: 20090725, end: 20090726
  25. NALBUPHINE HYDROCHLORIDE [Concomitant]
     Indication: PAIN
     Route: 042
     Dates: start: 20090730, end: 20090803
  26. BUDESONIDE [Concomitant]
     Dates: start: 20090730, end: 20090731
  27. PHLOROGLUCINOL AND TRIMETHYLPHLOROGLUCINOL [Concomitant]
     Route: 042
     Dates: start: 20090731, end: 20090802
  28. CLORAZEPATE DIPOTASSIUM [Concomitant]
     Indication: ANXIETY
     Route: 042
     Dates: start: 20090804
  29. ACETAMINOPHEN [Concomitant]
     Indication: PAIN
     Route: 048
     Dates: start: 20090725
  30. RASBURICASE [Concomitant]
     Route: 041
     Dates: start: 20090725, end: 20090727

REACTIONS (5)
  - CYTOTOXIC OEDEMA [None]
  - DYSARTHRIA [None]
  - EPILEPSY [None]
  - FACIAL PALSY [None]
  - HEMIPLEGIA [None]
